FAERS Safety Report 7129979-4 (Version None)
Quarter: 2010Q4

REPORT INFORMATION
  Report Type: 
  Country: None (occurrence: None)
  Receive Date: 20101201
  Receipt Date: 20101122
  Transmission Date: 20110411
  Serious: Yes (Hospitalization, Other)
  Sender: FDA-Public Use
  Company Number: US-BIOGENIDEC-2006BI015200

PATIENT
  Age: 46 Year
  Sex: Female
  Weight: 72 kg

DRUGS (7)
  1. AVONEX [Suspect]
     Indication: MULTIPLE SCLEROSIS
     Route: 030
     Dates: start: 20021101, end: 20030801
  2. AVONEX [Suspect]
     Route: 030
     Dates: start: 20030801
  3. TOPROL-XL [Concomitant]
     Indication: HYPERTENSION
  4. HYDROCHLOROTHIAZIDE [Concomitant]
     Indication: HYPERTENSION
  5. KLOR-CON [Concomitant]
     Indication: HYPERTENSION
  6. AMANTADINE HCL [Concomitant]
     Indication: FATIGUE
  7. OMEPRAZOLE [Concomitant]
     Indication: HIATUS HERNIA

REACTIONS (4)
  - ANAESTHETIC COMPLICATION [None]
  - BREAST CANCER IN SITU [None]
  - BREAST CANCER STAGE I [None]
  - IMPAIRED HEALING [None]
